FAERS Safety Report 8193461-6 (Version None)
Quarter: 2012Q1

REPORT INFORMATION
  Report Type: 
  Country: None (occurrence: None)
  Receive Date: 20120308
  Receipt Date: 20120306
  Transmission Date: 20120608
  Serious: Yes (Hospitalization, Other)
  Sender: FDA-Public Use
  Company Number: US-PFIZER INC-2012060829

PATIENT
  Sex: Female
  Weight: 47.619 kg

DRUGS (5)
  1. ALBUTEROL [Concomitant]
     Indication: EMPHYSEMA
  2. CHANTIX [Suspect]
     Indication: SMOKING CESSATION THERAPY
     Dosage: 0.5 MG, DAILY
     Route: 048
  3. ADVAIR DISKUS 100/50 [Concomitant]
     Indication: EMPHYSEMA
  4. ALBUTEROL [Concomitant]
     Indication: CHRONIC OBSTRUCTIVE PULMONARY DISEASE
     Dosage: 2.5 MG, 4X/DAY
  5. ADVAIR DISKUS 100/50 [Concomitant]
     Indication: CHRONIC OBSTRUCTIVE PULMONARY DISEASE
     Dosage: 250 UG, 2X/DAY

REACTIONS (4)
  - STAPHYLOCOCCAL INFECTION [None]
  - EMPHYSEMA [None]
  - PNEUMONIA [None]
  - CHRONIC OBSTRUCTIVE PULMONARY DISEASE [None]
